FAERS Safety Report 7599636-9 (Version None)
Quarter: 2011Q2

REPORT INFORMATION
  Report Type: 
  Country: None (occurrence: None)
  Receive Date: 20110623
  Receipt Date: 20110609
  Transmission Date: 20111010
  Serious: Yes (Hospitalization)
  Sender: FDA-Public Use
  Company Number: 2011PROUSA00382

PATIENT
  Age: 67 Year
  Sex: Male
  Weight: 76 kg

DRUGS (12)
  1. DILAUDID [Concomitant]
  2. PROVENGE [Suspect]
     Dosage: 250 ML, SINGLE, INTRAVENOUS
     Route: 042
     Dates: start: 20110527, end: 20110527
  3. PROVENGE [Suspect]
     Dates: start: 20110610, end: 20110610
  4. FENTANYL [Concomitant]
  5. ZOLOFT [Concomitant]
  6. SPIRONOLACTONE [Concomitant]
  7. PROVENGE [Suspect]
     Indication: PROSTATE CANCER METASTATIC
     Dosage: 250 ML, SINGLE, INTRAVENOUS
     Route: 042
     Dates: start: 20110513, end: 20110513
  8. COUMADIN [Concomitant]
  9. MULTIPLE VITAMINS (ASCORBIC ACID, ERGOCALCIFEROL, FOLIC ACID, RETINOL, [Concomitant]
  10. OXYCONTIN [Concomitant]
  11. LASIX [Concomitant]
  12. NEURONTIN [Concomitant]

REACTIONS (6)
  - BRAIN MASS [None]
  - SUBARACHNOID HAEMORRHAGE [None]
  - TUMOUR HAEMORRHAGE [None]
  - BRAIN OEDEMA [None]
  - METASTASES TO CENTRAL NERVOUS SYSTEM [None]
  - INTRACRANIAL PRESSURE INCREASED [None]
